FAERS Safety Report 11719393 (Version 1)
Quarter: 2015Q4

REPORT INFORMATION
  Report Type: Other
  Country: IT (occurrence: IT)
  Receive Date: 20151110
  Receipt Date: 20151110
  Transmission Date: 20160304
  Serious: Yes (Other)
  Sender: FDA-Public Use
  Company Number: IT-MYLANLABS-2015M1037715

PATIENT

DRUGS (1)
  1. OMEPRAZOLE. [Suspect]
     Active Substance: OMEPRAZOLE
     Indication: PRODUCT USED FOR UNKNOWN INDICATION
     Dosage: 80 MG, QD
     Route: 048

REACTIONS (8)
  - Apathy [Unknown]
  - Chest discomfort [Unknown]
  - Renal impairment [Unknown]
  - Fatigue [Unknown]
  - Sleep disorder [Unknown]
  - Blood pressure increased [Unknown]
  - Weight decreased [Unknown]
  - Renal pain [Unknown]
